FAERS Safety Report 5507432-9 (Version None)
Quarter: 2007Q4

REPORT INFORMATION
  Report Type: 
  Country: None (occurrence: None)
  Receive Date: 20071106
  Receipt Date: 20071101
  Transmission Date: 20080405
  Serious: Yes (Hospitalization, Other)
  Sender: FDA-Public Use
  Company Number: US-BRISTOL-MYERS SQUIBB COMPANY-13801246

PATIENT
  Age: 74 Year
  Sex: Female
  Weight: 59 kg

DRUGS (12)
  1. CETUXIMAB [Suspect]
     Indication: LARYNGEAL CANCER
     Dosage: LAST ADMINISTERED DATE 29 MAY 2007
     Route: 042
     Dates: start: 20070430, end: 20070529
  2. CISPLATIN [Suspect]
     Indication: LARYNGEAL CANCER
     Dosage: LAST ADMINISTERED ON 29 MAY 2007
     Route: 042
     Dates: start: 20070430, end: 20070529
  3. RADIATION THERAPY [Suspect]
     Indication: LARYNGEAL CANCER
     Dosage: 1 DOSAGE =7000CGY IN 35 FRACTIONS
     Dates: end: 20070618
  4. KYTRIL [Concomitant]
  5. ALOXI [Concomitant]
  6. BENADRYL [Concomitant]
  7. DECADRON [Concomitant]
  8. DURAGESIC-100 [Concomitant]
  9. HYDROCORTISONE [Concomitant]
  10. LORAZEPAM [Concomitant]
  11. PERCOCET [Concomitant]
  12. REGLAN [Concomitant]

REACTIONS (9)
  - DEHYDRATION [None]
  - DYSPHAGIA [None]
  - FATIGUE [None]
  - NAUSEA [None]
  - OESOPHAGEAL PAIN [None]
  - OESOPHAGITIS [None]
  - SALIVARY GLAND DISORDER [None]
  - STOMATITIS [None]
  - VOMITING [None]
